FAERS Safety Report 4570411-2 (Version None)
Quarter: 2005Q1

REPORT INFORMATION
  Report Type: 
  Country: None (occurrence: None)
  Receive Date: 20050204
  Receipt Date: 20040630
  Transmission Date: 20050727
  Serious: Yes (Life-Threatening, Hospitalization)
  Sender: FDA-Public Use
  Company Number: FR-MERCK-0407FRA00001

PATIENT
  Age: 77 Year
  Sex: Female

DRUGS (5)
  1. ZOCOR [Suspect]
     Indication: DYSLIPIDAEMIA
     Route: 048
     Dates: start: 20030901, end: 20040621
  2. ASPIRIN LYSINE [Concomitant]
     Indication: CORONARY ARTERY SURGERY
     Route: 048
  3. ACETAMINOPHEN [Concomitant]
     Route: 048
  4. NICORANDIL [Concomitant]
     Route: 048
  5. BISOPROLOL FUMARATE [Concomitant]
     Indication: HYPERTENSION
     Route: 048

REACTIONS (2)
  - ACUTE PULMONARY OEDEMA [None]
  - RHABDOMYOLYSIS [None]
